FAERS Safety Report 4919715-1 (Version None)
Quarter: 2006Q1

REPORT INFORMATION
  Report Type: 
  Country: None (occurrence: None)
  Receive Date: 20060113
  Receipt Date: 20051013
  Transmission Date: 20060701
  Serious: No
  Sender: FDA-Public Use
  Company Number: 2005SP003519

PATIENT
  Age: 38 Year
  Sex: Female
  Weight: 68.9467 kg

DRUGS (5)
  1. LUNESTA [Suspect]
     Indication: CHRONIC FATIGUE SYNDROME
     Dosage: 2 MG;HS;ORAL
     Route: 048
     Dates: start: 20050901
  2. LUNESTA [Suspect]
     Indication: INSOMNIA
     Dosage: 2 MG;HS;ORAL
     Route: 048
     Dates: start: 20050901
  3. ZYRTEC [Concomitant]
  4. BEXTRA [Concomitant]
  5. SYNTHROID [Concomitant]

REACTIONS (1)
  - DYSGEUSIA [None]
